FAERS Safety Report 15702238 (Version 2)
Quarter: 2022Q1

REPORT INFORMATION
  Report Type: Spontaneous
  Country: FR (occurrence: FR)
  Receive Date: 20181209
  Receipt Date: 20220317
  Transmission Date: 20220423
  Serious: Yes (Death, Life-Threatening, Hospitalization, Other)
  Sender: FDA-Public Use
  Company Number: FR-AUROBINDO-AUR-APL-2018-020876

PATIENT
  Age: 59 Year
  Sex: Male

DRUGS (13)
  1. FLUCONAZOLE [Suspect]
     Active Substance: FLUCONAZOLE
     Indication: Prophylaxis
     Dosage: UNK
     Route: 065
  2. VORICONAZOLE [Suspect]
     Active Substance: VORICONAZOLE
     Indication: Antifungal treatment
     Dosage: UNK
     Route: 065
  3. OXALIPLATIN [Suspect]
     Active Substance: OXALIPLATIN
     Indication: Mantle cell lymphoma stage III
     Dosage: UNK UNK, CYCLICAL
     Route: 065
  4. MELPHALAN [Suspect]
     Active Substance: MELPHALAN
     Indication: Mantle cell lymphoma stage III
     Dosage: 140 MILLIGRAM/SQ. METER, CYCLICAL D2
     Route: 065
  5. BICNU [Suspect]
     Active Substance: CARMUSTINE
     Indication: Mantle cell lymphoma stage III
     Dosage: 300 MILLIGRAM/SQ. METER, CYCLICAL D7
     Route: 065
  6. CASPOFUNGIN [Suspect]
     Active Substance: CASPOFUNGIN
     Indication: Product used for unknown indication
     Dosage: UNK
     Route: 065
  7. CYTARABINE [Suspect]
     Active Substance: CYTARABINE
     Indication: Mantle cell lymphoma stage III
     Dosage: UNK UNK, CYCLICAL
     Route: 065
  8. DEXAMETHASONE [Suspect]
     Active Substance: DEXAMETHASONE
     Indication: Mantle cell lymphoma stage III
     Dosage: UNK UNK, CYCLICAL
     Route: 065
  9. ETOPOSIDE [Suspect]
     Active Substance: ETOPOSIDE
     Indication: Product used for unknown indication
     Dosage: 400 MILLIGRAM/SQ. METER
     Route: 065
  10. PIPERACILLIN AND TAZOBACTAM [Suspect]
     Active Substance: PIPERACILLIN SODIUM\TAZOBACTAM SODIUM
     Indication: Product used for unknown indication
     Dosage: UNK
     Route: 065
  11. RITUXIMAB [Suspect]
     Active Substance: RITUXIMAB
     Indication: Mantle cell lymphoma stage III
     Dosage: UNK UNK, CYCLICAL
     Route: 065
  12. CYTARABINE [Concomitant]
     Active Substance: CYTARABINE
     Indication: Mantle cell lymphoma stage III
     Dosage: 400 MILLIGRAM/SQ. METER, CYCLICAL(200 MG/SQUARE METER TO 400 MG/SQUARE METER D6-D3)
     Route: 065
  13. ETOPOPHOS [Concomitant]
     Active Substance: ETOPOSIDE PHOSPHATE
     Indication: Mantle cell lymphoma stage III
     Dosage: 400 MILLIGRAM/SQ. METER, CYCLICAL( 200 MG/SQUARE METER TO 400 MG/SQUARE METER D6-D3
     Route: 065

REACTIONS (20)
  - Acute kidney injury [Fatal]
  - Hepatocellular injury [Fatal]
  - Arrhythmia [Fatal]
  - Intestinal ischaemia [Fatal]
  - Multiple organ dysfunction syndrome [Fatal]
  - Venoocclusive liver disease [Unknown]
  - Hepatitis fulminant [Fatal]
  - Renal ischaemia [Fatal]
  - Hepatotoxicity [Fatal]
  - Acute respiratory distress syndrome [Unknown]
  - Haemodynamic instability [Unknown]
  - Lactic acidosis [Unknown]
  - Anuria [Unknown]
  - Thrombocytopenia [Unknown]
  - Renal failure [Unknown]
  - Hepatic failure [Unknown]
  - Hepatic ischaemia [Unknown]
  - Pyrexia [Unknown]
  - Weight increased [Unknown]
  - Hepatomegaly [Unknown]

NARRATIVE: CASE EVENT DATE: 20150325
